FAERS Safety Report 9439749 (Version 2)
Quarter: 2013Q3

REPORT INFORMATION
  Report Type: Spontaneous
  Country: US (occurrence: US)
  Receive Date: 20130805
  Receipt Date: 20130812
  Transmission Date: 20140515
  Serious: Yes (Hospitalization, Other)
  Sender: FDA-Public Use
  Company Number: US-009507513-1307USA016258

PATIENT
  Sex: Female
  Weight: 81.63 kg

DRUGS (1)
  1. INTEGRILIN [Suspect]
     Indication: ANTICOAGULANT THERAPY
     Dosage: UNK, ROUTE REPORTED AS INTRAVENOUS
     Route: 040

REACTIONS (2)
  - Haematoma [Recovered/Resolved]
  - Hypovolaemic shock [Recovered/Resolved]
